FAERS Safety Report 10382522 (Version 2)
Quarter: 2014Q4

REPORT INFORMATION
  Report Type: Spontaneous
  Country: US (occurrence: US)
  Receive Date: 20140813
  Receipt Date: 20141024
  Transmission Date: 20150528
  Serious: Yes (Other)
  Sender: FDA-Public Use
  Company Number: US-SA-2014SA068800

PATIENT
  Age: 80 Year
  Sex: Female

DRUGS (3)
  1. MULTAQ [Interacting]
     Active Substance: DRONEDARONE
     Indication: ATRIAL FIBRILLATION
     Route: 048
  2. MULTAQ [Suspect]
     Active Substance: DRONEDARONE
     Indication: ATRIAL FIBRILLATION
     Route: 048
  3. ESCITALOPRAM [Interacting]
     Active Substance: ESCITALOPRAM OXALATE
     Indication: DEPRESSION
     Route: 065

REACTIONS (7)
  - Polymyalgia rheumatica [Unknown]
  - Pollakiuria [Unknown]
  - Blood potassium decreased [Unknown]
  - Productive cough [Unknown]
  - Myalgia [Unknown]
  - Pain in extremity [Unknown]
  - Drug interaction [Unknown]

NARRATIVE: CASE EVENT DATE: 201404
